FAERS Safety Report 18666761 (Version 3)
Quarter: 2021Q2

REPORT INFORMATION
  Report Type: Report from Study
  Country: IN (occurrence: IN)
  Receive Date: 20201227
  Receipt Date: 20210510
  Transmission Date: 20210717
  Serious: Yes (Hospitalization)
  Sender: FDA-Public Use
  Company Number: IN-AMGEN-INDCT2020207151

PATIENT
  Age: 46 Year
  Sex: Male
  Weight: 56.2 kg

DRUGS (1)
  1. PANITUMUMAB [Suspect]
     Active Substance: PANITUMUMAB
     Indication: COLORECTAL CANCER METASTATIC
     Dosage: 336 MILLIGRAM (6 MG/KG)
     Route: 042
     Dates: start: 20201203, end: 20201224

REACTIONS (4)
  - Muscular weakness [Recovered/Resolved]
  - Abdominal pain upper [Recovered/Resolved]
  - Back pain [Recovered/Resolved]
  - Nerve compression [Recovered/Resolved]

NARRATIVE: CASE EVENT DATE: 20201217
